FAERS Safety Report 24280610 (Version 3)
Quarter: 2024Q4

REPORT INFORMATION
  Report Type: Spontaneous
  Country: PL (occurrence: PL)
  Receive Date: 20240904
  Receipt Date: 20241113
  Transmission Date: 20250114
  Serious: Yes (Death, Hospitalization, Other)
  Sender: SANDOZ
  Company Number: PL-002147023-NVSC2024PL070299

PATIENT
  Age: 30 Year
  Sex: Male

DRUGS (20)
  1. AZITHROMYCIN [Suspect]
     Active Substance: AZITHROMYCIN
     Indication: Graft versus host disease
     Dosage: 500 MG
     Route: 065
  2. CANDESARTAN [Suspect]
     Active Substance: CANDESARTAN
     Dosage: 8 MG (1/2 TAB)
     Route: 065
  3. CANDESARTAN [Suspect]
     Active Substance: CANDESARTAN
     Indication: Product used for unknown indication
     Dosage: 800 MG (1/2 TAB)
     Route: 065
  4. CYCLOSPORINE [Suspect]
     Active Substance: CYCLOSPORINE
     Indication: Prophylaxis against graft versus host disease
     Dosage: UNK
     Route: 065
  5. FLUTICASONE [Suspect]
     Active Substance: FLUTICASONE
     Indication: Graft versus host disease
     Dosage: UNK
     Route: 065
  6. FLUTICASONE [Suspect]
     Active Substance: FLUTICASONE
     Indication: Chronic graft versus host disease
  7. METHOTREXATE [Suspect]
     Active Substance: METHOTREXATE
     Indication: Prophylaxis against graft versus host disease
     Dosage: UNK
     Route: 065
  8. METHOTREXATE [Suspect]
     Active Substance: METHOTREXATE
     Indication: Graft versus host disease
  9. METOPROLOL [Suspect]
     Active Substance: METOPROLOL
     Indication: Product used for unknown indication
     Dosage: UNK (23.75 MG 2X1TAB)
     Route: 065
  10. MONTELUKAST [Suspect]
     Active Substance: MONTELUKAST
     Indication: Graft versus host disease
     Dosage: UNK
     Route: 065
  11. MONTELUKAST [Suspect]
     Active Substance: MONTELUKAST
     Indication: Lung disorder
  12. MYCOPHENOLATE MOFETIL [Suspect]
     Active Substance: MYCOPHENOLATE MOFETIL
     Indication: Graft versus host disease
     Dosage: UNK
     Route: 065
  13. METHYLPREDNISOLONE [Suspect]
     Active Substance: METHYLPREDNISOLONE
     Indication: Graft versus host disease
     Dosage: UNK
     Route: 048
  14. RUXOLITINIB [Suspect]
     Active Substance: RUXOLITINIB
     Indication: Chronic graft versus host disease
     Dosage: UNK
     Route: 048
  15. SACUBITRIL\VALSARTAN [Suspect]
     Active Substance: SACUBITRIL\VALSARTAN
     Indication: Product used for unknown indication
     Dosage: UNK (24/26MG 2X1TAB)
     Route: 065
  16. TORSEMIDE [Suspect]
     Active Substance: TORSEMIDE
     Indication: Product used for unknown indication
     Dosage: 10 MG (2X1 TAB) (1 TAB IN MORNING)
     Route: 065
  17. TORSEMIDE [Suspect]
     Active Substance: TORSEMIDE
     Dosage: 100 MG (2X1 TAB)
     Route: 065
  18. FLUDARABINE [Concomitant]
     Active Substance: FLUDARABINE PHOSPHATE
     Indication: Product used for unknown indication
     Dosage: CONDITIONING
     Route: 065
  19. MELPHALAN [Concomitant]
     Active Substance: MELPHALAN
     Indication: Product used for unknown indication
     Dosage: CONDITIONING
     Route: 065
  20. MELPHALAN [Concomitant]
     Active Substance: MELPHALAN
     Dosage: CONDITIONING
     Route: 065

REACTIONS (17)
  - Weight decreased [Fatal]
  - Pneumonia [Fatal]
  - Disease progression [Fatal]
  - Lichenoid keratosis [Fatal]
  - Erythema [Fatal]
  - Mastication disorder [Fatal]
  - General physical health deterioration [Fatal]
  - Dyspnoea [Fatal]
  - Chronic graft versus host disease [Fatal]
  - Pleural effusion [Fatal]
  - Drug ineffective for unapproved indication [Unknown]
  - Product use in unapproved indication [Unknown]
  - Exercise tolerance decreased [Unknown]
  - Cough [Unknown]
  - Heart rate increased [Unknown]
  - Ejection fraction abnormal [Unknown]
  - Pulmonary congestion [Unknown]
